FAERS Safety Report 6399306-9 (Version None)
Quarter: 2009Q4

REPORT INFORMATION
  Report Type: 
  Country: None (occurrence: None)
  Receive Date: 20091014
  Receipt Date: 20070604
  Transmission Date: 20100525
  Serious: Yes (Hospitalization)
  Sender: FDA-Public Use
  Company Number: US-ASTRAZENECA-2007UW04070

PATIENT
  Age: 11334 Day
  Sex: Female
  Weight: 77.1 kg

DRUGS (24)
  1. SEROQUEL [Suspect]
     Indication: BIPOLAR DISORDER
     Dosage: 100 MG - 400 MG
     Route: 048
     Dates: start: 20030101, end: 20050101
  2. SEROQUEL [Suspect]
     Indication: SLEEP DISORDER
     Dosage: 100 MG - 400 MG
     Route: 048
     Dates: start: 20030101, end: 20050101
  3. SEROQUEL [Suspect]
     Dosage: 100-900 MG
     Route: 048
     Dates: start: 20030325, end: 20040901
  4. SEROQUEL [Suspect]
     Dosage: 100-900 MG
     Route: 048
     Dates: start: 20030325, end: 20040901
  5. SEROQUEL [Suspect]
     Route: 048
     Dates: start: 20050407
  6. SEROQUEL [Suspect]
     Route: 048
     Dates: start: 20050407
  7. RISPERDAL [Suspect]
     Indication: BIPOLAR DISORDER
     Dates: start: 20050101, end: 20050101
  8. ABILIFY [Concomitant]
     Dates: start: 20050101, end: 20060101
  9. GEODON [Concomitant]
     Dates: start: 20060101
  10. THORAZINE [Concomitant]
  11. TEMAZEPAM [Concomitant]
     Dates: start: 20030612
  12. LEXAPRO [Concomitant]
     Indication: BIPOLAR DISORDER
     Dates: start: 20030101
  13. LEXAPRO [Concomitant]
     Indication: SLEEP DISORDER
     Dates: start: 20030101
  14. DEPAKOTE [Concomitant]
     Indication: BIPOLAR DISORDER
     Dosage: 750-1500 MG
     Dates: start: 20030101, end: 20040101
  15. PAXIL [Concomitant]
     Dosage: 20-25 MG
     Dates: start: 20020101, end: 20050407
  16. ADDERALL XR 10 [Concomitant]
     Dates: start: 20060101
  17. XANAX [Concomitant]
     Indication: ANXIETY
     Dosage: 1-3 MG
     Route: 048
     Dates: start: 20020101
  18. LITHIUM [Concomitant]
     Dates: start: 20050101
  19. TRAZODONE [Concomitant]
     Indication: SLEEP DISORDER
     Dates: start: 20030101
  20. CYMBALTA [Concomitant]
     Dosage: 30-60 MG
     Dates: start: 20050101
  21. TRILEPTAL [Concomitant]
     Dosage: 900-1200 MG
     Dates: start: 20050101
  22. TOPROL-XL [Concomitant]
     Dates: start: 20060101
  23. LAMICTAL [Concomitant]
     Indication: MOOD SWINGS
     Dosage: 25 MG 2 TABLETS TWICE A DAY
     Dates: start: 20040101
  24. MELLARIL [Concomitant]
     Dosage: 100-150 MG
     Dates: start: 20040728

REACTIONS (8)
  - BIPOLAR DISORDER [None]
  - DIABETES MELLITUS [None]
  - DIABETES MELLITUS INADEQUATE CONTROL [None]
  - HYPERGLYCAEMIA [None]
  - HYPOTENSION [None]
  - MENTAL STATUS CHANGES [None]
  - OVERDOSE [None]
  - TYPE 2 DIABETES MELLITUS [None]
